FAERS Safety Report 4912685-1 (Version None)
Quarter: 2006Q1

REPORT INFORMATION
  Report Type: 
  Country: None (occurrence: None)
  Receive Date: 20060215
  Receipt Date: 20050609
  Transmission Date: 20060701
  Serious: Yes (Death)
  Sender: FDA-Public Use
  Company Number: US-MERCK-0506USA01550

PATIENT
  Age: 67 Year
  Sex: Female
  Weight: 80 kg

DRUGS (1)
  1. VIOXX [Suspect]
     Route: 048
     Dates: end: 20030603

REACTIONS (9)
  - CARDIOVASCULAR DISORDER [None]
  - DIABETES MELLITUS NON-INSULIN-DEPENDENT [None]
  - EPIDERMOLYSIS BULLOSA [None]
  - HEPATIC STEATOSIS [None]
  - HYPERTENSION [None]
  - OSTEOARTHRITIS [None]
  - PEPTIC ULCER [None]
  - PSORIASIS [None]
  - RENAL CYST [None]
